FAERS Safety Report 9596723 (Version 2)
Quarter: 2014Q2

REPORT INFORMATION
  Report Type: Spontaneous
  Country: AU (occurrence: AU)
  Receive Date: 20131004
  Receipt Date: 20140507
  Transmission Date: 20141212
  Serious: Yes (Hospitalization, Other)
  Sender: FDA-Public Use
  Company Number: AU-B.I. PHARMACEUTICALS,INC./RIDGEFIELD-2013-BI-31001AU

PATIENT
  Age: 70 Year
  Sex: Female

DRUGS (1)
  1. PRADAXA [Suspect]
     Indication: PRODUCT USED FOR UNKNOWN INDICATION
     Route: 065
     Dates: start: 201309

REACTIONS (2)
  - Cerebrovascular accident [Recovered/Resolved with Sequelae]
  - Fall [Recovered/Resolved with Sequelae]
